FAERS Safety Report 26150812 (Version 1)
Quarter: 2025Q4

REPORT INFORMATION
  Report Type: Spontaneous
  Country: US (occurrence: None)
  Receive Date: 20251211
  Receipt Date: 20251211
  Transmission Date: 20260117
  Serious: Yes (Hospitalization)
  Sender: FDA-CTU
  Company Number: None

PATIENT
  Age: 84 Year
  Sex: Female

DRUGS (17)
  1. NUPLAZID [Suspect]
     Active Substance: PIMAVANSERIN TARTRATE
     Indication: Hallucination
     Dosage: FREQUENCY : DAILY;
     Route: 048
     Dates: start: 20250312
  2. ELIQUIS [Concomitant]
     Active Substance: APIXABAN
  3. FLOMAX [Concomitant]
     Active Substance: TAMSULOSIN HYDROCHLORIDE
  4. CARVEDILOL [Concomitant]
     Active Substance: CARVEDILOL
  5. Sinmet [Concomitant]
  6. AMLODIPINE [Concomitant]
     Active Substance: AMLODIPINE BESYLATE
  7. Glycopyrol [Concomitant]
  8. LOSARTAN [Concomitant]
     Active Substance: LOSARTAN
  9. DOXAZOSIN [Concomitant]
     Active Substance: DOXAZOSIN MESYLATE
  10. LIPITOR [Concomitant]
     Active Substance: ATORVASTATIN CALCIUM
  11. ZOFRAN [Concomitant]
     Active Substance: ONDANSETRON HYDROCHLORIDE
  12. DICYCLOMINE [Concomitant]
     Active Substance: DICYCLOMINE HYDROCHLORIDE
  13. METHOCARBAMOL [Concomitant]
     Active Substance: METHOCARBAMOL
  14. Malatonin [Concomitant]
  15. LEXAPRO [Concomitant]
     Active Substance: ESCITALOPRAM OXALATE
  16. LASIX [Concomitant]
     Active Substance: FUROSEMIDE
  17. NITROSTAT [Concomitant]
     Active Substance: NITROGLYCERIN

REACTIONS (3)
  - Fall [None]
  - Rib fracture [None]
  - Brain injury [None]

NARRATIVE: CASE EVENT DATE: 20251202
